FAERS Safety Report 16492998 (Version 1)
Quarter: 2019Q2

REPORT INFORMATION
  Report Type: Spontaneous
  Country: US (occurrence: US)
  Receive Date: 20190628
  Receipt Date: 20190628
  Transmission Date: 20190711
  Serious: No
  Sender: FDA-Public Use
  Company Number: US-PERRIGO-18US006060

PATIENT
  Age: 37 Year
  Sex: Female
  Weight: 126.98 kg

DRUGS (2)
  1. RANITIDINE HYDROCHLORIDE. [Suspect]
     Active Substance: RANITIDINE HYDROCHLORIDE
     Indication: GASTROOESOPHAGEAL REFLUX DISEASE
     Dosage: 150 TO 300 MG, QD
     Route: 048
     Dates: start: 2013, end: 20180605
  2. HYDROCODONE                        /00060002/ [Concomitant]
     Active Substance: HYDROCODONE
     Indication: PAIN
     Dosage: 5MG
     Route: 065
     Dates: start: 201801

REACTIONS (3)
  - Incorrect product administration duration [Recovered/Resolved]
  - Incorrect dose administered [Recovered/Resolved]
  - Drug screen positive [Recovered/Resolved]

NARRATIVE: CASE EVENT DATE: 2013
